FAERS Safety Report 4475944-5 (Version None)
Quarter: 2004Q3

REPORT INFORMATION
  Report Type: 
  Country: None (occurrence: None)
  Receive Date: 20040923
  Receipt Date: 20040712
  Transmission Date: 20050211
  Serious: No
  Sender: FDA-Public Use
  Company Number: USA040772347

PATIENT
  Age: 75 Year
  Sex: Female
  Weight: 84 kg

DRUGS (10)
  1. FORTEO [Suspect]
     Indication: OSTEOPOROSIS
     Dosage: 20 UG/1 DAY
     Dates: start: 20040501, end: 20040705
  2. FOSAMAX [Concomitant]
  3. FEMARA [Concomitant]
  4. AVANDIA [Concomitant]
  5. PRILOSEC [Concomitant]
  6. NEURONTIN [Concomitant]
  7. LEVOXYL [Concomitant]
  8. ALTACE [Concomitant]
  9. BEXTRA [Concomitant]
  10. CALCIUM [Concomitant]

REACTIONS (8)
  - ARTHRALGIA [None]
  - BACK DISORDER [None]
  - BACK PAIN [None]
  - CHILLS [None]
  - DECREASED APPETITE [None]
  - HOT FLUSH [None]
  - NAUSEA [None]
  - WEIGHT DECREASED [None]
